FAERS Safety Report 10465693 (Version 1)
Quarter: 2014Q3

REPORT INFORMATION
  Report Type: Spontaneous
  Country: US (occurrence: US)
  Receive Date: 20140919
  Receipt Date: 20140919
  Transmission Date: 20150326
  Serious: Yes (Death, Hospitalization, Other)
  Sender: FDA-Public Use
  Company Number: US-B.I. PHARMACEUTICALS,INC./RIDGEFIELD-2014-BI-43906BP

PATIENT
  Age: 77 Year
  Sex: Female

DRUGS (2)
  1. PRADAXA [Suspect]
     Active Substance: DABIGATRAN ETEXILATE MESYLATE
     Indication: ATRIAL FIBRILLATION
     Dosage: 300 MG
     Route: 065
     Dates: start: 201012, end: 20110527
  2. PRADAXA [Suspect]
     Active Substance: DABIGATRAN ETEXILATE MESYLATE
     Dosage: 150 MG
     Route: 065
     Dates: start: 20110527, end: 20120301

REACTIONS (26)
  - Renal failure chronic [Fatal]
  - Upper gastrointestinal haemorrhage [Unknown]
  - Gastrointestinal haemorrhage [Recovered/Resolved]
  - Sepsis [Unknown]
  - Mental status changes [Not Recovered/Not Resolved]
  - Carotid artery stenosis [Unknown]
  - Hypoxia [Unknown]
  - Disseminated intravascular coagulation [Unknown]
  - Hypophosphataemia [Unknown]
  - Cellulitis [Unknown]
  - Renal failure acute [Not Recovered/Not Resolved]
  - Fall [Recovered/Resolved]
  - Contusion [Unknown]
  - Anxiety [Unknown]
  - Depression [Unknown]
  - Ascites [Not Recovered/Not Resolved]
  - Cardiac failure congestive [Not Recovered/Not Resolved]
  - Skin necrosis [Unknown]
  - Constipation [Unknown]
  - Gastrooesophageal reflux disease [Unknown]
  - Hypothyroidism [Unknown]
  - Thrombocytosis [Unknown]
  - Gastritis erosive [Unknown]
  - Peripheral vascular disorder [Unknown]
  - Bile duct stone [Unknown]
  - Liver disorder [Unknown]

NARRATIVE: CASE EVENT DATE: 201105
